FAERS Safety Report 10042566 (Version 2)
Quarter: 2014Q1

REPORT INFORMATION
  Report Type: Spontaneous
  Country: ES (occurrence: ES)
  Receive Date: 20140327
  Receipt Date: 20140327
  Transmission Date: 20141002
  Serious: Yes (Other)
  Sender: FDA-Public Use
  Company Number: ES-ROXANE LABORATORIES, INC.-2014-BI-04281GD

PATIENT
  Age: 69 Year
  Sex: Female

DRUGS (7)
  1. PREDNISONE [Suspect]
     Indication: DERMATOMYOSITIS
     Dosage: STARTED AT 60 MG FOR 6 WEEKS, THEN TAPERED BY 5 MG/WEEK TO 20 MG, THEN TAPERED BY 2.5 MG/2 WEEKS TO
     Route: 065
  2. PREDNISONE [Suspect]
     Indication: INTERSTITIAL LUNG DISEASE
  3. AZATHIOPRINE [Concomitant]
     Indication: DERMATOMYOSITIS
     Route: 065
  4. AZATHIOPRINE [Concomitant]
     Indication: INTERSTITIAL LUNG DISEASE
  5. ALENDRONATE [Concomitant]
     Indication: OSTEOPOROSIS
     Dosage: 10 MG
     Route: 065
  6. CALCIUM [Concomitant]
     Indication: OSTEOPOROSIS
     Dosage: 1000 MG
     Route: 065
  7. VITAMIN D [Concomitant]
     Indication: OSTEOPOROSIS
     Dosage: 400 U
     Route: 065

REACTIONS (2)
  - Osteonecrosis [Unknown]
  - Intervertebral disc degeneration [Unknown]
